FAERS Safety Report 4596663-0 (Version None)
Quarter: 2005Q1

REPORT INFORMATION
  Report Type: 
  Country: None (occurrence: None)
  Receive Date: 20050228
  Receipt Date: 20050214
  Transmission Date: 20050727
  Serious: Yes (Other)
  Sender: FDA-Public Use
  Company Number: 2005030482

PATIENT
  Age: 45 Year
  Sex: Female

DRUGS (5)
  1. GEODON [Suspect]
     Dosage: 80 MG
     Dates: start: 20050201, end: 20050201
  2. BUPROPION HYDROCHLORIDE [Concomitant]
  3. LAMOTRIGINE [Concomitant]
  4. CARVEDILOL [Concomitant]
  5. VALSARTAN (VALSARTAN) [Concomitant]

REACTIONS (5)
  - BLOOD SODIUM DECREASED [None]
  - DYSARTHRIA [None]
  - DYSPNOEA [None]
  - HAEMOGLOBIN DECREASED [None]
  - SWOLLEN TONGUE [None]
